FAERS Safety Report 9401303 (Version 1)
Quarter: 2013Q3

REPORT INFORMATION
  Report Type: Spontaneous
  Country: AR (occurrence: AR)
  Receive Date: 20130715
  Receipt Date: 20130715
  Transmission Date: 20140515
  Serious: Yes (Hospitalization)
  Sender: FDA-Public Use
  Company Number: AR-B.I. PHARMACEUTICALS,INC./RIDGEFIELD-2013-RA-00200RA

PATIENT
  Age: 53 Year
  Sex: Male
  Weight: 83 kg

DRUGS (1)
  1. TRAYENTA [Suspect]
     Indication: TYPE 2 DIABETES MELLITUS
     Dosage: 5 MG
     Route: 048
     Dates: start: 20130221, end: 20130615

REACTIONS (1)
  - Pancreatitis [Recovered/Resolved]
